FAERS Safety Report 14996937 (Version 2)
Quarter: 2021Q4

REPORT INFORMATION
  Report Type: Spontaneous
  Country: US (occurrence: US)
  Receive Date: 20180611
  Receipt Date: 20211029
  Transmission Date: 20220303
  Serious: Yes (Disabling, Other)
  Sender: FDA-Public Use
  Company Number: US-TEVA-2018-US-903336

PATIENT
  Age: 51 Year
  Sex: Female
  Weight: 54.8 kg

DRUGS (11)
  1. DOCETAXEL [Suspect]
     Active Substance: DOCETAXEL
     Indication: Breast cancer female
     Dosage: NUMBER OF CYCLES 6, FREQUENCY-EVERY 3 WEEKS, TREATED WITH 120 MG
     Route: 042
     Dates: start: 20131009, end: 20140122
  2. DOCETAXEL [Suspect]
     Active Substance: DOCETAXEL
     Dosage: NUMBER OF CYCLES 6, FREQUENCY-EVERY 3 WEEKS, TREATED WITH 120 MG
     Route: 042
     Dates: start: 20131009, end: 20140122
  3. CARBOPLATIN [Suspect]
     Active Substance: CARBOPLATIN
     Indication: Breast cancer female
     Dosage: NUMBER OF CYCLES:06, FREQUENCY: EVERY 3 WEEKS, TREATED WITH 120 MG
     Route: 042
     Dates: start: 20131009, end: 20140122
  4. DOCETAXEL [Suspect]
     Active Substance: DOCETAXEL
     Indication: Breast cancer female
     Dosage: NUMBER OF CYCLES 6, FREQUENCY-EVERY 3 WEEKS, TREATED WITH 120 MG
     Route: 042
     Dates: start: 20131009, end: 20140122
  5. DOCETAXEL [Suspect]
     Active Substance: DOCETAXEL
     Indication: Breast cancer female
     Dosage: NUMBER OF CYCLES 6, FREQUENCY-EVERY 3 WEEKS, TREATED WITH 120 MG
     Route: 042
     Dates: start: 20131009, end: 20140122
  6. DOCETAXEL [Suspect]
     Active Substance: DOCETAXEL
     Route: 042
     Dates: start: 20131009, end: 20140122
  7. HERCEPTIN [Suspect]
     Active Substance: TRASTUZUMAB
     Indication: Breast cancer female
     Dosage: NUMBER OF CYCLES 6, FREQUENCY-EVERY 3 WEEKS, TREATED WITH 120 MG
     Route: 042
     Dates: start: 20131009, end: 20140122
  8. HERCEPTIN [Suspect]
     Active Substance: TRASTUZUMAB
     Route: 042
     Dates: start: 20131009, end: 20140122
  9. NEULASTA [Suspect]
     Active Substance: PEGFILGRASTIM
     Route: 065
  10. DEXAMETHASONE [Concomitant]
     Active Substance: DEXAMETHASONE
     Route: 065
  11. ZOFRAN [Concomitant]
     Active Substance: ONDANSETRON HYDROCHLORIDE
     Route: 065

REACTIONS (30)
  - Alopecia [Not Recovered/Not Resolved]
  - Madarosis [Not Recovered/Not Resolved]
  - Neuropathy peripheral [Recovered/Resolved]
  - Hair texture abnormal [Not Recovered/Not Resolved]
  - Hair colour changes [Not Recovered/Not Resolved]
  - Fluid retention [Recovering/Resolving]
  - Fatigue [Unknown]
  - Oedema peripheral [Recovering/Resolving]
  - Dyspnoea exertional [Recovered/Resolved]
  - Diarrhoea [Recovered/Resolved]
  - Paraesthesia [Recovering/Resolving]
  - Neuralgia [Recovered/Resolved]
  - Balance disorder [Recovered/Resolved]
  - Fine motor skill dysfunction [Recovered/Resolved]
  - Hypokinesia [Unknown]
  - Insomnia [Unknown]
  - Asthenia [Recovering/Resolving]
  - Dyspepsia [Recovered/Resolved]
  - Myalgia [Unknown]
  - Hypoaesthesia [Recovering/Resolving]
  - Peripheral swelling [Unknown]
  - Weight increased [Recovering/Resolving]
  - Fall [Recovered/Resolved]
  - Contusion [Recovering/Resolving]
  - Nail disorder [Unknown]
  - Bone pain [Recovered/Resolved]
  - Arthralgia [Unknown]
  - Back pain [Unknown]
  - Gait disturbance [Recovering/Resolving]
  - Anaemia [Recovering/Resolving]

NARRATIVE: CASE EVENT DATE: 20130101
